FAERS Safety Report 8247053-0 (Version None)
Quarter: 2012Q1

REPORT INFORMATION
  Report Type: 
  Country: None (occurrence: None)
  Receive Date: 20120330
  Receipt Date: 20120131
  Transmission Date: 20120608
  Serious: No
  Sender: FDA-Public Use
  Company Number: US-BAYER-2012-000892

PATIENT
  Age: 78 Year
  Sex: Male
  Weight: 70.295 kg

DRUGS (5)
  1. VITAMIN B-12 [Concomitant]
  2. LEVITRA [Suspect]
     Dosage: 20 MG, BIW
     Route: 048
     Dates: start: 20120102
  3. SIMVASTATIN [Concomitant]
     Indication: BLOOD CHOLESTEROL INCREASED
     Dosage: 20 MG, ONCE
  4. OMEPRAZOLE [Concomitant]
     Indication: REFLUX GASTRITIS
     Dosage: 20 MG, ONCE
  5. LISINOPRIL [Concomitant]
     Indication: BLOOD PRESSURE MANAGEMENT
     Dosage: 10 MG, ONCE

REACTIONS (2)
  - DIARRHOEA [None]
  - ERECTILE DYSFUNCTION [None]
